FAERS Safety Report 5854141-2 (Version None)
Quarter: 2008Q3

REPORT INFORMATION
  Report Type: 
  Country: None (occurrence: None)
  Receive Date: 20080822
  Receipt Date: 20080808
  Transmission Date: 20090109
  Serious: Yes (Death, Hospitalization, Other)
  Sender: FDA-Public Use
  Company Number: FR-ELI_LILLY_AND_COMPANY-FR200808001639

PATIENT
  Sex: Female

DRUGS (7)
  1. GEMZAR [Suspect]
     Indication: TRANSITIONAL CELL CARCINOMA
     Dosage: 1600 MG, MONTHLY (1/M)
     Route: 042
     Dates: start: 20080515
  2. GEMZAR [Suspect]
     Dosage: 1550 MG, UNKNOWN
     Route: 065
     Dates: start: 20080613
  3. CARBOPLATIN [Concomitant]
     Indication: TRANSITIONAL CELL CARCINOMA
     Dosage: 340 MG, UNKNOWN
     Route: 042
     Dates: start: 20080515, end: 20080515
  4. OXYCODONE HCL [Concomitant]
     Dosage: UNK, UNKNOWN
     Route: 065
  5. LYRICA [Concomitant]
     Dosage: UNK, UNKNOWN
     Route: 065
  6. VOGALENE [Concomitant]
     Dosage: UNK, UNKNOWN
     Route: 065
  7. FORLAX [Concomitant]
     Dosage: UNK, UNKNOWN
     Route: 065

REACTIONS (7)
  - CHILLS [None]
  - DEATH [None]
  - GENERAL PHYSICAL HEALTH DETERIORATION [None]
  - LUNG DISORDER [None]
  - METASTASES TO LIVER [None]
  - PLEURISY [None]
  - PYREXIA [None]
